FAERS Safety Report 9306413 (Version 4)
Quarter: 2013Q4

REPORT INFORMATION
  Report Type: Spontaneous
  Country: IT (occurrence: IT)
  Receive Date: 20130523
  Receipt Date: 20131023
  Transmission Date: 20140711
  Serious: Yes (Other)
  Sender: FDA-Public Use
  Company Number: IT-UCBSA-086679

PATIENT
  Age: 66 Year
  Sex: Female
  Weight: 88 kg

DRUGS (9)
  1. ROTIGOTINE [Suspect]
     Indication: PARKINSON^S DISEASE
     Route: 062
     Dates: start: 20110525
  2. ROTIGOTINE [Suspect]
     Indication: PARKINSON^S DISEASE
     Route: 062
     Dates: start: 20111212
  3. MADOPAR [Suspect]
     Indication: PARKINSON^S DISEASE
     Route: 048
     Dates: start: 20120715, end: 20130701
  4. TEGRETOL [Suspect]
     Indication: EPILEPSY
     Route: 048
     Dates: start: 19920615
  5. CARDIOASPIRIN [Concomitant]
     Indication: MYOCARDIAL INFARCTION
     Dosage: 30 TABLETS
     Route: 048
     Dates: start: 2002
  6. CARDURA [Concomitant]
     Indication: HYPERTENSION
     Dosage: 20 TABLETS
     Route: 048
     Dates: start: 2002
  7. LESCOL [Concomitant]
     Indication: HYPERCHOLESTEROLAEMIA
     Dosage: 28 TABLETS
     Route: 048
     Dates: start: 2002
  8. OLMETEC [Concomitant]
     Dosage: 28 TABLETS
  9. TRAVATAN [Concomitant]

REACTIONS (3)
  - Maculopathy [Not Recovered/Not Resolved]
  - Angiosclerosis [Not Recovered/Not Resolved]
  - Optic neuropathy [Not Recovered/Not Resolved]
